FAERS Safety Report 9992379 (Version 1)
Quarter: 2014Q1

REPORT INFORMATION
  Report Type: Spontaneous
  Country: CA (occurrence: CA)
  Receive Date: 20140310
  Receipt Date: 20140310
  Transmission Date: 20141002
  Serious: Yes (Other)
  Sender: FDA-Public Use
  Company Number: CA-GLAXOSMITHKLINE-A1063933A

PATIENT
  Age: 69 Year
  Sex: Male
  Weight: 90.9 kg

DRUGS (7)
  1. ADVAIR [Suspect]
     Indication: PRODUCT USED FOR UNKNOWN INDICATION
     Dosage: 1PUFF TWICE PER DAY
     Route: 055
  2. APO-INDOMETHACIN [Concomitant]
     Dosage: 25MG UNKNOWN
     Route: 065
  3. CELEBREX [Concomitant]
     Dosage: 200MG UNKNOWN
     Route: 065
  4. DILTIAZEM [Concomitant]
  5. HYDROCHLOROTHIAZIDE [Concomitant]
     Route: 065
  6. HYDROCORTISONE [Concomitant]
  7. SPIRIVA [Concomitant]

REACTIONS (5)
  - Arthralgia [Not Recovered/Not Resolved]
  - Chest discomfort [Unknown]
  - Eye swelling [Unknown]
  - Swelling face [Unknown]
  - Vision blurred [Unknown]
